FAERS Safety Report 8016574-8 (Version None)
Quarter: 2011Q4

REPORT INFORMATION
  Report Type: 
  Country: None (occurrence: None)
  Receive Date: 20111230
  Receipt Date: 20111223
  Transmission Date: 20120403
  Serious: Yes (Other)
  Sender: FDA-Public Use
  Company Number: BE-ASTRAZENECA-2011SE78139

PATIENT
  Age: 59 Year
  Sex: Male
  Weight: 67 kg

DRUGS (5)
  1. LISINOPRIL [Concomitant]
     Dates: start: 20100308
  2. TENORMIN [Interacting]
     Route: 048
  3. VARENICLINE TARTRATE [Interacting]
     Indication: SMOKING CESSATION THERAPY
     Route: 048
     Dates: start: 20101012
  4. TENORMIN [Suspect]
     Route: 048
     Dates: start: 20030101
  5. EZETIMIBE [Concomitant]
     Dates: start: 20100714

REACTIONS (2)
  - DRUG INTERACTION [None]
  - PSORIASIS [None]
